FAERS Safety Report 12579075 (Version 2)
Quarter: 2016Q3

REPORT INFORMATION
  Report Type: Spontaneous
  Country: DK (occurrence: DK)
  Receive Date: 20160721
  Receipt Date: 20160902
  Transmission Date: 20161109
  Serious: Yes (Death, Life-Threatening, Hospitalization, Other)
  Sender: FDA-Public Use
  Company Number: PHHY2016DK098786

PATIENT
  Age: 73 Year
  Sex: Female

DRUGS (2)
  1. MYCOPHENOLATE MOFETIL. [Suspect]
     Active Substance: MYCOPHENOLATE MOFETIL
     Indication: PYODERMA GANGRENOSUM
     Route: 065
  2. INFLIXIMAB [Suspect]
     Active Substance: INFLIXIMAB
     Indication: PYODERMA GANGRENOSUM
     Dosage: 400 MG, UNK
     Route: 042

REACTIONS (6)
  - Encephalopathy [Fatal]
  - Condition aggravated [Fatal]
  - Immunosuppression [Unknown]
  - Varicella zoster virus infection [Unknown]
  - Ophthalmoplegia [Not Recovered/Not Resolved]
  - Orbital apex syndrome [Unknown]
